FAERS Safety Report 6695470-2 (Version None)
Quarter: 2010Q2

REPORT INFORMATION
  Report Type: 
  Country: None (occurrence: None)
  Receive Date: 20100422
  Receipt Date: 20100422
  Transmission Date: 20101027
  Serious: Yes (Life-Threatening, Hospitalization)
  Sender: FDA-Public Use
  Company Number: None

PATIENT
  Age: 20 Year
  Sex: Male
  Weight: 81.6 kg

DRUGS (2)
  1. ACETAMINOPHEN [Suspect]
     Indication: OVERDOSE
     Dosage: 58 GM ONCE PO
     Route: 048
     Dates: start: 20100415, end: 20100415
  2. ASPIRIN [Suspect]
     Indication: OVERDOSE
     Dosage: 170 GM ONCE PO
     Route: 048
     Dates: start: 20100415, end: 20100415

REACTIONS (5)
  - BRADYCARDIA [None]
  - CONFUSIONAL STATE [None]
  - OVERDOSE [None]
  - TACHYARRHYTHMIA [None]
  - UNRESPONSIVE TO STIMULI [None]
